FAERS Safety Report 15011718 (Version 1)
Quarter: 2018Q2

REPORT INFORMATION
  Report Type: Other
  Country: CA (occurrence: CA)
  Receive Date: 20180614
  Receipt Date: 20180614
  Transmission Date: 20180711
  Serious: Yes (Disabling)
  Sender: FDA-Public Use
  Company Number: CA-APOTEX-2018AP015344

PATIENT
  Age: 62 Year
  Sex: Female

DRUGS (1)
  1. APO-OLANZAPINE [Suspect]
     Active Substance: OLANZAPINE
     Indication: SCHIZOPHRENIA
     Dosage: 2.5 MG, QD
     Route: 048

REACTIONS (4)
  - Somnambulism [Recovering/Resolving]
  - Dry mouth [Recovering/Resolving]
  - Hypersomnia [Recovering/Resolving]
  - Weight increased [Recovering/Resolving]
